FAERS Safety Report 8267605-1 (Version None)
Quarter: 2012Q2

REPORT INFORMATION
  Report Type: 
  Country: None (occurrence: None)
  Receive Date: 20120409
  Receipt Date: 20120329
  Transmission Date: 20120825
  Serious: Yes (Life-Threatening, Other)
  Sender: FDA-Public Use
  Company Number: US-GENZYME-THYM-1003206

PATIENT
  Age: 43 Year
  Sex: Male

DRUGS (1)
  1. THYMOGLOBULIN [Suspect]
     Indication: PROPHYLAXIS AGAINST TRANSPLANT REJECTION
     Dosage: UNK
     Route: 042
     Dates: start: 20120327, end: 20120327

REACTIONS (3)
  - HYPOTENSION [None]
  - CEREBRAL INFARCTION [None]
  - KIDNEY TRANSPLANT REJECTION [None]
